FAERS Safety Report 7960886-0 (Version None)
Quarter: 2011Q4

REPORT INFORMATION
  Report Type: 
  Country: None (occurrence: None)
  Receive Date: 20111201
  Receipt Date: 20111116
  Transmission Date: 20120403
  Serious: Yes (Hospitalization, Other)
  Sender: FDA-Public Use
  Company Number: 2011SGN00311

PATIENT
  Age: 23 Year
  Sex: Male

DRUGS (1)
  1. ADCETRIS [Suspect]
     Indication: HODGKIN'S DISEASE
     Dates: start: 20111027

REACTIONS (2)
  - PNEUMONIA [None]
  - NEUTROPENIA [None]
